FAERS Safety Report 14082685 (Version 1)
Quarter: 2017Q4

REPORT INFORMATION
  Report Type: Spontaneous
  Country: US (occurrence: None)
  Receive Date: 20171013
  Receipt Date: 20171013
  Transmission Date: 20180321
  Serious: Yes (Disabling)
  Sender: FDA-Public Use
  Company Number: None

PATIENT
  Age: 83 Year
  Sex: Female
  Weight: 58.06 kg

DRUGS (6)
  1. MULTIVITAMIN [Concomitant]
     Active Substance: VITAMINS
  2. PANTOPRAZOLE [Concomitant]
     Active Substance: PANTOPRAZOLE
  3. PROLIA [Suspect]
     Active Substance: DENOSUMAB
     Indication: OSTEOPOROSIS
     Dosage: 2 TIMES PER YEAR INJECTION
     Dates: start: 20170728
  4. ELIQUIS [Concomitant]
     Active Substance: APIXABAN
  5. FLECANIDE [Concomitant]
     Active Substance: FLECAINIDE
  6. MIRALAX [Concomitant]
     Active Substance: POLYETHYLENE GLYCOL 3350

REACTIONS (10)
  - Vomiting [None]
  - Nausea [None]
  - Diarrhoea [None]
  - Fungal infection [None]
  - Headache [None]
  - Eructation [None]
  - Muscle spasms [None]
  - Hot flush [None]
  - Pain in extremity [None]
  - Fatigue [None]

NARRATIVE: CASE EVENT DATE: 20170728
